FAERS Safety Report 16313353 (Version 2)
Quarter: 2019Q2

REPORT INFORMATION
  Report Type: Spontaneous
  Country: JP (occurrence: JP)
  Receive Date: 20190515
  Receipt Date: 20190521
  Transmission Date: 20190711
  Serious: Yes (Life-Threatening, Hospitalization, Other)
  Sender: FDA-Public Use
  Company Number: JP-STRIDES ARCOLAB LIMITED-2019SP004017

PATIENT
  Age: 13 Year
  Sex: Female

DRUGS (5)
  1. METHYLPREDNISOLONE. [Suspect]
     Active Substance: METHYLPREDNISOLONE
     Dosage: UNK
     Route: 048
  2. MYCOPHENOLATE MOFETIL. [Suspect]
     Active Substance: MYCOPHENOLATE MOFETIL
     Indication: LIVER TRANSPLANT
     Dosage: UNK
     Route: 048
  3. METHYLPREDNISOLONE. [Suspect]
     Active Substance: METHYLPREDNISOLONE
     Indication: LIVER TRANSPLANT
     Dosage: UNK
     Route: 048
  4. TACROLIMUS. [Suspect]
     Active Substance: TACROLIMUS
     Dosage: UNK
     Route: 048
  5. TACROLIMUS. [Suspect]
     Active Substance: TACROLIMUS
     Indication: LIVER TRANSPLANT
     Dosage: UNK
     Route: 048

REACTIONS (16)
  - Haemorrhagic diathesis [Recovered/Resolved]
  - Rash generalised [Recovered/Resolved]
  - Pneumonia [Recovered/Resolved]
  - Disseminated varicella zoster vaccine virus infection [Recovered/Resolved]
  - Bone marrow failure [Recovered/Resolved]
  - Pyrexia [Recovered/Resolved]
  - Rash vesicular [Recovered/Resolved]
  - Cytomegalovirus infection [Recovered/Resolved]
  - Disseminated intravascular coagulation [Recovered/Resolved]
  - Liver injury [Recovered/Resolved]
  - Back pain [Recovered/Resolved]
  - Hepatitis acute [Recovered/Resolved]
  - Generalised tonic-clonic seizure [Recovered/Resolved]
  - Multiple organ dysfunction syndrome [Recovered/Resolved]
  - Neutropenia [Recovered/Resolved]
  - Encephalitis [Recovered/Resolved]
